FAERS Safety Report 11087429 (Version 1)
Quarter: 2015Q2

REPORT INFORMATION
  Report Type: Report from Study
  Country: BR (occurrence: BR)
  Receive Date: 20150504
  Receipt Date: 20150504
  Transmission Date: 20150821
  Serious: Yes (Hospitalization)
  Sender: FDA-Public Use
  Company Number: BR-ROCHE-1571344

PATIENT
  Sex: Male

DRUGS (7)
  1. VENLAFAXINE [Concomitant]
     Active Substance: VENLAFAXINE HYDROCHLORIDE
     Route: 065
  2. TRIAMCINOLONE [Concomitant]
     Active Substance: TRIAMCINOLONE
     Route: 065
  3. GINKGO BILOBA [Concomitant]
     Active Substance: GINKGO
     Route: 065
  4. DIPYRONE [Concomitant]
     Active Substance: DIPYRONE
     Indication: PAIN
  5. DEPURA [Concomitant]
     Active Substance: CHOLECALCIFEROL
     Route: 065
  6. PARACETAMOL/PSEUDOEPHEDRINE HYDROCHLORIDE [Concomitant]
     Indication: SINUSITIS
  7. MABTHERA [Suspect]
     Active Substance: RITUXIMAB
     Indication: RHEUMATOID ARTHRITIS
     Route: 042
     Dates: start: 201410, end: 201503

REACTIONS (8)
  - Pneumonia [Unknown]
  - Back pain [Unknown]
  - Chills [Unknown]
  - Cough [Unknown]
  - Blood pressure increased [Unknown]
  - Fatigue [Unknown]
  - Pulmonary pain [Unknown]
  - Nasopharyngitis [Unknown]
